FAERS Safety Report 18136542 (Version 1)
Quarter: 2020Q3

REPORT INFORMATION
  Report Type: Spontaneous
  Country: CA (occurrence: CA)
  Receive Date: 20200811
  Receipt Date: 20200811
  Transmission Date: 20201103
  Serious: Yes (Other)
  Sender: FDA-Public Use
  Company Number: CA-TEVA-2020-CA-1811949

PATIENT
  Age: 41 Year
  Sex: Female

DRUGS (8)
  1. GINGER ROOT [ZINGIBER OFFICINALE ROOT] [Concomitant]
  2. VITAMIN B12 [MECOBALAMIN] [Concomitant]
     Route: 065
  3. APPLE CIDER VINEGAR [Concomitant]
     Active Substance: APPLE CIDER VINEGAR
     Route: 065
  4. VITAMIN B COMPLEX [Concomitant]
     Active Substance: CYANOCOBALAMIN\DEXPANTHENOL\NIACINAMIDE\PYRIDOXINE HYDROCHLORIDE\RIBOFLAVIN 5^-PHOSPHATE SODIUM\THIAMINE HYDROCHLORIDE\VITAMIN B COMPLEX
     Route: 065
  5. VITAMIN C [Concomitant]
     Active Substance: ASCORBIC ACID
     Route: 065
  6. METHOTREXATE. [Suspect]
     Active Substance: METHOTREXATE
     Indication: PRODUCT USED FOR UNKNOWN INDICATION
     Route: 065
  7. CURCUMIN [Concomitant]
     Active Substance: CURCUMIN
     Route: 065
  8. NIGELLA SATIVA SEED OIL [Concomitant]
     Active Substance: DIETARY SUPPLEMENT\HERBALS

REACTIONS (4)
  - Feeling abnormal [Unknown]
  - Diverticulitis [Unknown]
  - Pain [Unknown]
  - Infection [Unknown]
